FAERS Safety Report 5009007-7 (Version None)
Quarter: 2006Q2

REPORT INFORMATION
  Report Type: 
  Country: None (occurrence: None)
  Receive Date: 20060518
  Receipt Date: 20060509
  Transmission Date: 20061013
  Serious: Yes (Hospitalization)
  Sender: FDA-Public Use
  Company Number: 110417ISR

PATIENT
  Age: 38 Year

DRUGS (1)
  1. GLATIRAMER ACETATE [Suspect]
     Indication: MULTIPLE SCLEROSIS
     Dosage: 20 MILLIGRAM
     Route: 058
     Dates: start: 20040622

REACTIONS (3)
  - ECONOMIC PROBLEM [None]
  - LOSS OF EMPLOYMENT [None]
  - PSYCHOSOMATIC DISEASE [None]
